FAERS Safety Report 5463001-0 (Version None)
Quarter: 2007Q3

REPORT INFORMATION
  Report Type: 
  Country: None (occurrence: None)
  Receive Date: 20070918
  Receipt Date: 20070918
  Transmission Date: 20080115
  Serious: Yes (Other)
  Sender: FDA-Public Use
  Company Number: None

PATIENT
  Sex: Female
  Weight: 65.7716 kg

DRUGS (7)
  1. PHENERGAN HCL [Suspect]
     Indication: MIGRAINE
     Dosage: ONCE IM
     Route: 030
     Dates: start: 20070823, end: 20070823
  2. PHENERGAN HCL [Suspect]
     Indication: NAUSEA
     Dosage: ONCE IM
     Route: 030
     Dates: start: 20070823, end: 20070823
  3. TORADOL [Concomitant]
  4. BENADRYL [Concomitant]
  5. TOPAMAX [Concomitant]
  6. STADOL [Concomitant]
  7. PHRENALIN [Concomitant]

REACTIONS (9)
  - ERYTHEMA [None]
  - FASCIITIS [None]
  - INJECTION SITE DISCOLOURATION [None]
  - INJECTION SITE REACTION [None]
  - INJECTION SITE SWELLING [None]
  - INJECTION SITE WARMTH [None]
  - MYOSITIS [None]
  - PAIN IN EXTREMITY [None]
  - PYREXIA [None]
